FAERS Safety Report 4688670-4 (Version None)
Quarter: 2005Q2

REPORT INFORMATION
  Report Type: 
  Country: None (occurrence: None)
  Receive Date: 20050610
  Receipt Date: 20050610
  Transmission Date: 20051028
  Serious: Yes (Other)
  Sender: FDA-Public Use
  Company Number: None

PATIENT
  Sex: Female
  Weight: 58.8 kg

DRUGS (5)
  1. CISPLATIN [Suspect]
     Indication: NEOPLASM
     Dosage: 40 MG/M2 GIVEN WEEKLY WITH EXTERNAL RT
     Dates: start: 20050425
  2. AMIFOSTINE [Suspect]
     Indication: NEOPLASM
     Dosage: DAILY, GIVEN BEFORE EACH RT
     Dates: start: 20050425
  3. RADIATION [Suspect]
     Indication: NEOPLASM
     Dates: start: 20050425
  4. LIPITOR [Concomitant]
  5. SYNTHROID [Concomitant]

REACTIONS (6)
  - ABDOMINAL PAIN [None]
  - DIARRHOEA [None]
  - FEBRILE NEUTROPENIA [None]
  - HAEMOGLOBIN DECREASED [None]
  - HEADACHE [None]
  - WHITE BLOOD CELL COUNT DECREASED [None]
